FAERS Safety Report 4831957-2 (Version None)
Quarter: 2005Q4

REPORT INFORMATION
  Report Type: 
  Country: None (occurrence: None)
  Receive Date: 20051116
  Receipt Date: 20051102
  Transmission Date: 20060501
  Serious: Yes (Hospitalization)
  Sender: FDA-Public Use
  Company Number: 2005P1000531

PATIENT
  Age: 38 Year
  Sex: Female

DRUGS (2)
  1. NICARDIPINE HCL [Suspect]
  2. ALBUTEROL [Suspect]

REACTIONS (4)
  - ACUTE PULMONARY OEDEMA [None]
  - CAESAREAN SECTION [None]
  - CHOLESTASIS OF PREGNANCY [None]
  - DRUG EXPOSURE DURING PREGNANCY [None]
